FAERS Safety Report 6356017-3 (Version None)
Quarter: 2009Q3

REPORT INFORMATION
  Report Type: 
  Country: None (occurrence: None)
  Receive Date: 20090911
  Receipt Date: 20090911
  Transmission Date: 20100115
  Serious: No
  Sender: FDA-Public Use
  Company Number: None

PATIENT
  Age: 54 Year
  Sex: Male
  Weight: 113.6 kg

DRUGS (1)
  1. LIPITOR [Suspect]
     Indication: BLOOD CHOLESTEROL
     Dosage: 20 MG DAILY BY MOUTH
     Route: 048
     Dates: start: 20051001, end: 20081101

REACTIONS (2)
  - ARTHRALGIA [None]
  - GAIT DISTURBANCE [None]
